FAERS Safety Report 9062455 (Version 3)
Quarter: 2014Q1

REPORT INFORMATION
  Report Type: Report from Study
  Country: DE (occurrence: DE)
  Receive Date: 20130128
  Receipt Date: 20140311
  Transmission Date: 20141002
  Serious: Yes (Other)
  Sender: FDA-Public Use
  Company Number: DE-BAYER-2013-007966

PATIENT
  Age: 55 Year
  Sex: Female
  Weight: 63 kg

DRUGS (1)
  1. BETAFERON [Suspect]
     Indication: MULTIPLE SCLEROSIS
     Dosage: 250 ?G, QOD
     Dates: start: 19990101, end: 20120901

REACTIONS (4)
  - Myocardial infarction [Recovered/Resolved]
  - Anaemia [Unknown]
  - Leukopenia [None]
  - Thrombocytopenia [None]
